FAERS Safety Report 24357127 (Version 1)
Quarter: 2024Q3

REPORT INFORMATION
  Report Type: Spontaneous
  Country: CN (occurrence: CN)
  Receive Date: 20240924
  Receipt Date: 20240924
  Transmission Date: 20241017
  Serious: Yes (Life-Threatening, Other)
  Sender: BAYER
  Company Number: CN-BAYER-2024A135770

PATIENT
  Age: 50 Year
  Sex: Female
  Weight: 65 kg

DRUGS (1)
  1. GADOBUTROL [Suspect]
     Active Substance: GADOBUTROL
     Indication: Scan with contrast
     Dosage: 6 ML, ONCE, DISSOLVED IN NORMAL SALINE 20 ML
     Route: 042
     Dates: start: 20240909, end: 20240909

REACTIONS (11)
  - Anaphylactic shock [Recovering/Resolving]
  - Blood pressure decreased [Recovering/Resolving]
  - Dizziness [Recovering/Resolving]
  - Pruritus [None]
  - Erythema [Recovering/Resolving]
  - Somnolence [Recovering/Resolving]
  - Asthenia [Recovering/Resolving]
  - Vision blurred [Recovering/Resolving]
  - Tic [Recovering/Resolving]
  - Muscle spasticity [Recovering/Resolving]
  - Blood pressure immeasurable [Recovering/Resolving]

NARRATIVE: CASE EVENT DATE: 20240909
